FAERS Safety Report 5531548-4 (Version None)
Quarter: 2007Q4

REPORT INFORMATION
  Report Type: 
  Country: None (occurrence: None)
  Receive Date: 20071127
  Receipt Date: 20071127
  Transmission Date: 20080405
  Serious: Yes (Hospitalization)
  Sender: FDA-Public Use
  Company Number: None

PATIENT
  Age: 79 Year
  Sex: Male
  Weight: 72.8 kg

DRUGS (5)
  1. LISINOPRIL [Suspect]
     Indication: HYPERTENSION
     Dosage: 10 MG EVERY DAY PO
     Route: 048
     Dates: start: 20020426, end: 20071029
  2. METFORMIN HCL [Concomitant]
  3. GLYBURIDE [Concomitant]
  4. DOXAZOSIN MESYLATE [Concomitant]
  5. PROPRANOLOL [Concomitant]

REACTIONS (1)
  - PANCREATITIS ACUTE [None]
